FAERS Safety Report 10401801 (Version 4)
Quarter: 2015Q1

REPORT INFORMATION
  Report Type: Spontaneous
  Country: US (occurrence: US)
  Receive Date: 20140822
  Receipt Date: 20150119
  Transmission Date: 20150720
  Serious: No
  Sender: FDA-Public Use
  Company Number: US-UNITED THERAPEUTICS-UNT-2014-005940

PATIENT
  Age: 66 Year
  Sex: Female
  Weight: 81.63 kg

DRUGS (3)
  1. REMODULIN [Suspect]
     Active Substance: TREPROSTINIL
     Indication: COR PULMONALE CHRONIC
     Dosage: 0.045 ?G/KG, CONTINUING
     Route: 058
     Dates: start: 20070515
  2. ADCIRCA [Suspect]
     Active Substance: TADALAFIL
     Indication: COR PULMONALE CHRONIC
     Dosage: 20 MG, QD
     Route: 048
     Dates: start: 20091111
  3. LETAIRIS [Concomitant]
     Active Substance: AMBRISENTAN
     Indication: PRODUCT USED FOR UNKNOWN INDICATION
     Dosage: 5 MG, UNK
     Dates: start: 20111215

REACTIONS (1)
  - Musculoskeletal chest pain [Recovered/Resolved]

NARRATIVE: CASE EVENT DATE: 20140805
